FAERS Safety Report 4960293-9 (Version None)
Quarter: 2006Q1

REPORT INFORMATION
  Report Type: 
  Country: None (occurrence: None)
  Receive Date: 20060328
  Receipt Date: 20060315
  Transmission Date: 20060701
  Serious: Yes (Life-Threatening)
  Sender: FDA-Public Use
  Company Number: 2006040021

PATIENT
  Age: 58 Year
  Sex: Male

DRUGS (2)
  1. ATARAX [Suspect]
     Indication: PREMEDICATION
     Dosage: 75 MG ONCE ORAL
     Route: 048
     Dates: start: 20060221, end: 20060221
  2. AUGMENTIN '125' [Suspect]
     Indication: ANTIBIOTIC PROPHYLAXIS
     Dosage: 2 GRAM (ONCE), INTRAVENOUS
     Route: 042
     Dates: start: 20060221, end: 20060221

REACTIONS (2)
  - ANAPHYLACTIC SHOCK [None]
  - ERYTHEMA [None]
